FAERS Safety Report 4843752-9 (Version None)
Quarter: 2005Q4

REPORT INFORMATION
  Report Type: 
  Country: None (occurrence: None)
  Receive Date: 20051129
  Receipt Date: 20051118
  Transmission Date: 20060501
  Serious: Yes (Other)
  Sender: FDA-Public Use
  Company Number: 200513980GDS

PATIENT
  Age: 41 Year
  Sex: Male

DRUGS (1)
  1. CIPRO HC [Suspect]
     Dosage: BID, AURICULAR (OTIC)
     Route: 001

REACTIONS (3)
  - CHEST DISCOMFORT [None]
  - DYSARTHRIA [None]
  - LOSS OF CONSCIOUSNESS [None]
